FAERS Safety Report 24186722 (Version 2)
Quarter: 2024Q3

REPORT INFORMATION
  Report Type: Report from Study
  Country: US (occurrence: US)
  Receive Date: 20240808
  Receipt Date: 20240812
  Transmission Date: 20241017
  Serious: No
  Sender: ROCHE
  Company Number: US-ROCHE-2139174

PATIENT
  Age: 60 Year
  Sex: Female

DRUGS (5)
  1. CELLCEPT [Suspect]
     Active Substance: MYCOPHENOLATE MOFETIL
     Indication: CREST syndrome
     Dosage: TAKE 2 TABLETS (1,000 MG TOTAL) BY MOUTH 2 (TWO) TIMESDAILY
     Route: 048
  2. CELLCEPT [Suspect]
     Active Substance: MYCOPHENOLATE MOFETIL
     Indication: Raynaud^s phenomenon
     Route: 048
     Dates: start: 201807
  3. CELLCEPT [Suspect]
     Active Substance: MYCOPHENOLATE MOFETIL
     Indication: Interstitial lung disease
     Route: 048
  4. CELLCEPT [Suspect]
     Active Substance: MYCOPHENOLATE MOFETIL
     Indication: Basal cell carcinoma
  5. CELLCEPT [Suspect]
     Active Substance: MYCOPHENOLATE MOFETIL
     Indication: Interstitial lung disease

REACTIONS (10)
  - Illness [Unknown]
  - Ill-defined disorder [Unknown]
  - Arthropod bite [Unknown]
  - Ill-defined disorder [Unknown]
  - Impaired healing [Unknown]
  - Wound [Unknown]
  - Product prescribing error [Unknown]
  - Circumstance or information capable of leading to medication error [Unknown]
  - Off label use [Unknown]
  - Peripheral vascular disorder [Unknown]
